FAERS Safety Report 21998010 (Version 1)
Quarter: 2023Q1

REPORT INFORMATION
  Report Type: Report from Study
  Country: US (occurrence: US)
  Receive Date: 20230216
  Receipt Date: 20230216
  Transmission Date: 20230418
  Serious: Yes (Hospitalization, Other)
  Sender: FDA-Public Use
  Company Number: US-ABBVIE-4304502

PATIENT
  Sex: Female

DRUGS (1)
  1. VENCLEXTA [Suspect]
     Active Substance: VENETOCLAX
     Indication: Product used for unknown indication
     Dosage: TAKE 2 TABLETS BY MOUTH ONCE DAILY WITH FOOD AND A FULL GLASS OF WATER (KEEP IN ORIGINAL BOTTLE)
     Route: 048
     Dates: start: 202211

REACTIONS (9)
  - Haemoglobin abnormal [Unknown]
  - Peripheral swelling [Unknown]
  - Haemorrhage [Unknown]
  - Rash [Unknown]
  - Blister [Unknown]
  - Nail disorder [Unknown]
  - Platelet count abnormal [Unknown]
  - Blood test abnormal [Unknown]
  - Renal disorder [Unknown]

NARRATIVE: CASE EVENT DATE: 20230101
